FAERS Safety Report 9997059 (Version 1)
Quarter: 2014Q1

REPORT INFORMATION
  Report Type: Spontaneous
  Country: US (occurrence: None)
  Receive Date: 20140228
  Receipt Date: 20140228
  Transmission Date: 20141002
  Serious: Yes (Other)
  Sender: FDA-Public Use
  Company Number: 265350

PATIENT
  Age: 50 Year
  Sex: Male
  Weight: 123.8 kg

DRUGS (9)
  1. PRANDIN [Suspect]
     Indication: DIABETES MELLITUS
     Dosage: UNKNOWN , ORAL
     Route: 048
     Dates: start: 199807, end: 200705
  2. BYETTA [Suspect]
     Indication: DIABETES MELLITUS
     Dosage: 10 MG,  UNK, SUBCTANEOUS
     Route: 058
     Dates: start: 200605, end: 200706
  3. METFORMIN (METFORMIN) [Concomitant]
  4. PRECOSE (ACARBOSE) [Concomitant]
  5. PRAVACHOL (PRAVASTATIN SODIUM) [Concomitant]
  6. ASA (ACETYLSALICYLIC ACID) [Concomitant]
  7. COZAAR (LOSARTAN  POTASSIUM) [Concomitant]
  8. CINNAMON (CINNAMON VERUM) [Concomitant]
  9. MULTIVITAMIN (VITAMINS NOS) [Concomitant]

REACTIONS (5)
  - Pancreatitis [None]
  - Weight decreased [None]
  - Amylase increased [None]
  - Lipase increased [None]
  - Blood glucose increased [None]
